FAERS Safety Report 8306133-1 (Version None)
Quarter: 2012Q2

REPORT INFORMATION
  Report Type: 
  Country: None (occurrence: None)
  Receive Date: 20120423
  Receipt Date: 20120410
  Transmission Date: 20120825
  Serious: Yes (Disabling)
  Sender: FDA-Public Use
  Company Number: FR-MYLANLABS-2012S1007434

PATIENT
  Age: 51 Year
  Sex: Female

DRUGS (1)
  1. PIROXICAM [Suspect]
     Indication: MUSCULOSKELETAL PAIN
     Route: 048
     Dates: start: 20120101

REACTIONS (1)
  - TOXIC SKIN ERUPTION [None]
